FAERS Safety Report 5186668-3 (Version None)
Quarter: 2006Q4

REPORT INFORMATION
  Report Type: 
  Country: None (occurrence: None)
  Receive Date: 20061220
  Receipt Date: 20060619
  Transmission Date: 20070319
  Serious: Yes (Death)
  Sender: FDA-Public Use
  Company Number: GB-MERCK-0606GBR00076

PATIENT
  Age: 72 Year
  Sex: Male

DRUGS (2)
  1. ZOCOR [Suspect]
     Indication: HYPERCHOLESTEROLAEMIA
     Route: 048
     Dates: start: 20040101, end: 20060414
  2. FUSIDIC ACID [Suspect]
     Indication: STAPHYLOCOCCAL SEPSIS
     Route: 048
     Dates: start: 20060322

REACTIONS (2)
  - DRUG INTERACTION [None]
  - MYOPATHY [None]
